FAERS Safety Report 7690493-9 (Version None)
Quarter: 2011Q3

REPORT INFORMATION
  Report Type: 
  Country: None (occurrence: None)
  Receive Date: 20110818
  Receipt Date: 20110815
  Transmission Date: 20111222
  Serious: Yes (Death, Hospitalization)
  Sender: FDA-Public Use
  Company Number: GB-PFIZER INC-2011186985

PATIENT
  Age: 44 Year
  Sex: Female
  Weight: 102.8 kg

DRUGS (5)
  1. LEVOTHYROXINE SODIUM [Concomitant]
     Indication: PRIMARY HYPOTHYROIDISM
  2. FLECAINIDE [Concomitant]
     Indication: ATRIAL FIBRILLATION
     Dosage: 100 MG, 2X/DAY
     Route: 048
     Dates: start: 19900701
  3. LEVOTHYROXINE SODIUM [Concomitant]
     Indication: THYROID DISORDER
     Dosage: 125 UG, DAILY
     Route: 048
     Dates: start: 20061113
  4. SOMATROPIN RDNA [Suspect]
     Indication: GROWTH HORMONE DEFICIENCY
     Dosage: 0.6 MG PER DAY, 7 INJECTIONS PER WEEK
     Dates: start: 20080108, end: 20110716
  5. HYDROCORTISONE [Concomitant]
     Indication: BLOOD CORTICOTROPHIN DECREASED
     Dosage: 25 MG, DAILY
     Route: 048
     Dates: start: 20000915

REACTIONS (1)
  - DEATH [None]
